FAERS Safety Report 24370378 (Version 1)
Quarter: 2024Q3

REPORT INFORMATION
  Report Type: Spontaneous
  Country: GB (occurrence: GB)
  Receive Date: 20240927
  Receipt Date: 20240927
  Transmission Date: 20241016
  Serious: Yes (Hospitalization)
  Sender: AMGEN
  Company Number: GB-AMGEN-GBRSP2024189246

PATIENT

DRUGS (1)
  1. PROLIA [Suspect]
     Active Substance: DENOSUMAB
     Indication: Product used for unknown indication
     Dosage: UNK (HAVE BEEN ON SINCE AROUND 2011)
     Route: 065

REACTIONS (1)
  - Pathological fracture [Unknown]
